FAERS Safety Report 5424514-0 (Version None)
Quarter: 2007Q3

REPORT INFORMATION
  Report Type: 
  Country: None (occurrence: None)
  Receive Date: 20070727
  Receipt Date: 20070412
  Transmission Date: 20080115
  Serious: No
  Sender: FDA-Public Use
  Company Number: 262696

PATIENT
  Age: 90 Year
  Sex: Female

DRUGS (2)
  1. LEVEMIR [Suspect]
     Indication: INSULIN-REQUIRING TYPE II DIABETES MELLITUS
     Dosage: 33 U, QD, SUBCUTANEOUS
     Route: 058
  2. ASPIRIN [Concomitant]

REACTIONS (1)
  - INJECTION SITE BRUISING [None]
